FAERS Safety Report 7487362-6 (Version None)
Quarter: 2011Q2

REPORT INFORMATION
  Report Type: 
  Country: None (occurrence: None)
  Receive Date: 20110510
  Receipt Date: 20110429
  Transmission Date: 20111010
  Serious: Yes (Death)
  Sender: FDA-Public Use
  Company Number: EU-2011-10074

PATIENT
  Age: 83 Year
  Sex: Female

DRUGS (16)
  1. METHYLPREDNISOLONE [Concomitant]
  2. ACTRAPID (INSULIN) [Concomitant]
  3. SAMSCA [Suspect]
     Indication: HYPONATRAEMIA
     Dosage: 7.5 MG MILLIGRAM(S), ORAL
     Route: 048
     Dates: end: 20110401
  4. HEPARIN [Concomitant]
  5. NIMOTOP [Concomitant]
  6. ACETAMINOPHEN [Concomitant]
  7. TANAKENE (GINKGO BILOBA EXTRACT) [Concomitant]
  8. DEXKETOPROFEN (DEXKETOPROFEN) [Concomitant]
  9. LANTUS [Concomitant]
  10. ATROVENT [Concomitant]
  11. TORSEMIDE [Concomitant]
  12. ALOPURINOL (ALLOPURINOL) [Concomitant]
  13. VENTOIN (SALBUTAMOL) [Concomitant]
  14. LEVOFLOXACIN [Concomitant]
  15. PAROXETINE HCL [Concomitant]
  16. OMEPRAZOLE [Concomitant]

REACTIONS (3)
  - WRONG TECHNIQUE IN DRUG USAGE PROCESS [None]
  - PNEUMONIA [None]
  - RESPIRATORY FAILURE [None]
